FAERS Safety Report 7001687-X (Version None)
Quarter: 2010Q3

REPORT INFORMATION
  Report Type: 
  Country: None (occurrence: None)
  Receive Date: 20100920
  Receipt Date: 20100908
  Transmission Date: 20110219
  Serious: Yes (Hospitalization)
  Sender: FDA-Public Use
  Company Number: PL-PFIZER INC-2006125006

PATIENT
  Age: 70 Year
  Sex: Male
  Weight: 93 kg

DRUGS (11)
  1. SUNITINIB MALATE [Suspect]
     Indication: METASTATIC RENAL CELL CARCINOMA
     Dosage: 37.5 MG, 1X/DAY
     Route: 048
     Dates: start: 20051220, end: 20060526
  2. INSULIN [Concomitant]
     Dosage: UNK
     Route: 058
     Dates: start: 20051101
  3. GLICLAZIDE [Concomitant]
     Dosage: UNK
     Route: 048
     Dates: start: 20000101, end: 20060101
  4. TRAMADOL [Concomitant]
     Dosage: UNK
     Route: 048
     Dates: start: 20060101
  5. ASCORBIC ACID [Concomitant]
     Dosage: UNK
     Route: 048
     Dates: start: 20060101
  6. IRON [Concomitant]
     Dosage: UNK
     Route: 048
     Dates: start: 20060601
  7. THIAMINE HCL [Concomitant]
     Dosage: UNK
     Route: 048
     Dates: start: 20060601
  8. CARVEDILOL [Concomitant]
     Dosage: UNK
     Route: 048
     Dates: start: 20060601
  9. BROMAZEPAM [Concomitant]
     Dosage: UNK
     Route: 048
     Dates: start: 20060601
  10. THEOPHYLLINE [Concomitant]
     Dosage: UNK
     Route: 048
     Dates: start: 20060601
  11. AMLODIPINE [Concomitant]
     Dosage: UNK
     Route: 048
     Dates: start: 20060601

REACTIONS (2)
  - ATRIAL FIBRILLATION [None]
  - PULMONARY OEDEMA [None]
